FAERS Safety Report 17421114 (Version 2)
Quarter: 2020Q1

REPORT INFORMATION
  Report Type: Spontaneous
  Country: IT (occurrence: IT)
  Receive Date: 20200214
  Receipt Date: 20200325
  Transmission Date: 20200409
  Serious: Yes (Other)
  Sender: FDA-Public Use
  Company Number: NVSC2020IT040480

PATIENT
  Age: 35 Year
  Sex: Female

DRUGS (2)
  1. ACETYLSALICYLIC ACID [Suspect]
     Active Substance: ASPIRIN
     Indication: ANTIPHOSPHOLIPID SYNDROME
     Dosage: 100 MG
     Route: 065
  2. LOW MOLECULAR WEIGHT HEPARIN [Suspect]
     Active Substance: UNSPECIFIED INGREDIENT
     Indication: ANTIPHOSPHOLIPID SYNDROME
     Dosage: UNK
     Route: 065

REACTIONS (4)
  - Premature delivery [Unknown]
  - Foetal growth restriction [Unknown]
  - Product use in unapproved indication [Unknown]
  - Maternal exposure during pregnancy [Unknown]
